FAERS Safety Report 5674896-X (Version None)
Quarter: 2008Q1

REPORT INFORMATION
  Report Type: 
  Country: None (occurrence: None)
  Receive Date: 20080319
  Receipt Date: 20080319
  Transmission Date: 20080703
  Serious: Yes (Life-Threatening)
  Sender: FDA-Public Use
  Company Number: None

PATIENT
  Sex: Male
  Weight: 71 kg

DRUGS (1)
  1. BORTEZOMIB [Suspect]
     Indication: T-CELL LYMPHOMA RECURRENT
     Dosage: 2.4MG IV
     Route: 042
     Dates: start: 20080204, end: 20080214

REACTIONS (3)
  - GALLBLADDER DISORDER [None]
  - HEPATIC INFECTION FUNGAL [None]
  - MUCORMYCOSIS [None]
